FAERS Safety Report 9927764 (Version 1)
Quarter: 2014Q1

REPORT INFORMATION
  Report Type: Spontaneous
  Country: CH (occurrence: CH)
  Receive Date: 20140227
  Receipt Date: 20140227
  Transmission Date: 20141002
  Serious: Yes (Hospitalization)
  Sender: FDA-Public Use
  Company Number: CH-BRISTOL-MYERS SQUIBB COMPANY-20270591

PATIENT
  Age: 66 Year
  Sex: Male
  Weight: 83.5 kg

DRUGS (3)
  1. YERVOY [Suspect]
     Indication: MALIGNANT MELANOMA
     Dosage: INFUSION AMPOULES,VIALS/BOTTLES
     Route: 042
     Dates: start: 20131203, end: 20131223
  2. SPIRICORT [Suspect]
     Indication: MALIGNANT MELANOMA
     Dosage: FILM COATED TABS
     Route: 048
  3. NEXIUM [Suspect]
     Indication: GASTRITIS PROPHYLAXIS
     Dosage: STRENGTH 44.5MG
     Route: 048

REACTIONS (3)
  - Hepatic enzyme increased [Recovering/Resolving]
  - Campylobacter gastroenteritis [Recovered/Resolved]
  - Malignant neoplasm progression [Unknown]
